FAERS Safety Report 10079085 (Version 1)
Quarter: 2014Q2

REPORT INFORMATION
  Report Type: Spontaneous
  Country: US (occurrence: None)
  Receive Date: 20140411
  Receipt Date: 20140411
  Transmission Date: 20141212
  Serious: Yes (Other)
  Sender: FDA-Public Use
  Company Number: None

PATIENT
  Age: 59 Year
  Sex: Female
  Weight: 140 kg

DRUGS (1)
  1. SYNTHROID [Suspect]
     Indication: HYPOTHYROIDISM
     Dosage: 1 PILL, 1 A DAY MORNING, BY MOUTH
     Route: 048

REACTIONS (5)
  - Heart rate increased [None]
  - Cerebrovascular accident [None]
  - Myocardial infarction [None]
  - Palpitations [None]
  - Apparent death [None]
